FAERS Safety Report 21711938 (Version 1)
Quarter: 2022Q4

REPORT INFORMATION
  Report Type: Spontaneous
  Country: US (occurrence: None)
  Receive Date: 20221208
  Receipt Date: 20221208
  Transmission Date: 20230113
  Serious: No
  Sender: FDA-Public Use
  Company Number: None

PATIENT
  Age: 76 Year
  Sex: Female
  Weight: 79.83 kg

DRUGS (17)
  1. MEKINIST [Suspect]
     Active Substance: TRAMETINIB DIMETHYL SULFOXIDE
     Indication: Lung neoplasm malignant
     Dosage: FREQUENCY : DAILY;?
     Route: 048
     Dates: end: 20221208
  2. TAFINLAR [Suspect]
     Active Substance: DABRAFENIB MESYLATE
     Indication: Lung neoplasm malignant
     Dosage: FREQUENCY : TWICE A DAY;?
     Route: 048
     Dates: end: 20221208
  3. ALBUTEROL [Concomitant]
     Active Substance: ALBUTEROL
  4. ATENOLOL [Concomitant]
     Active Substance: ATENOLOL
  5. ELIQUIS [Concomitant]
     Active Substance: APIXABAN
  6. IPRATROPIUM [Concomitant]
     Active Substance: IPRATROPIUM
  7. LAMOTRIGINE [Concomitant]
     Active Substance: LAMOTRIGINE
  8. LANTUS [Concomitant]
     Active Substance: INSULIN GLARGINE
  9. LEVAQUIN [Concomitant]
     Active Substance: LEVOFLOXACIN
  10. LORATADINE [Concomitant]
     Active Substance: LORATADINE
  11. LOSARTAN [Concomitant]
     Active Substance: LOSARTAN
  12. MECLIZINE [Concomitant]
     Active Substance: MECLIZINE HYDROCHLORIDE
  13. METFORMIN [Concomitant]
     Active Substance: METFORMIN HYDROCHLORIDE
  14. ROSUVASTATIN [Concomitant]
     Active Substance: ROSUVASTATIN
  15. SERTRALINE [Concomitant]
     Active Substance: SERTRALINE HYDROCHLORIDE
  16. VITAMIN B12 [Concomitant]
     Active Substance: CYANOCOBALAMIN
  17. VITAMIN D2 [Concomitant]
     Active Substance: ERGOCALCIFEROL

REACTIONS (1)
  - Cardiac failure congestive [None]

NARRATIVE: CASE EVENT DATE: 20221208
